FAERS Safety Report 20430740 (Version 2)
Quarter: 2024Q3

REPORT INFORMATION
  Report Type: Report from Study
  Country: FR (occurrence: FR)
  Receive Date: 20220204
  Receipt Date: 20240712
  Transmission Date: 20241017
  Serious: Yes (Hospitalization)
  Sender: SERVIER
  Company Number: FR-SERVIER-S21003106

PATIENT

DRUGS (5)
  1. PEGASPARGASE [Suspect]
     Active Substance: PEGASPARGASE
     Indication: Acute lymphocytic leukaemia
     Dosage: 787.5 IU, QD ON D4
     Route: 042
     Dates: start: 20201211, end: 20201211
  2. VINCRISTINE SULFATE [Suspect]
     Active Substance: VINCRISTINE SULFATE
     Indication: Acute lymphocytic leukaemia
     Dosage: 0.9 MG ON D1, D8, AND D15
     Route: 042
     Dates: start: 20201207, end: 20201222
  3. DEXAMETHASONE [Suspect]
     Active Substance: DEXAMETHASONE
     Indication: Acute lymphocytic leukaemia
     Dosage: 6 MG ON D1 TO D14
     Route: 048
     Dates: start: 20201207, end: 20201221
  4. METHOTREXATE [Suspect]
     Active Substance: METHOTREXATE
     Indication: Acute lymphocytic leukaemia
     Dosage: 12 MG ON D4 AND D31
     Route: 037
     Dates: start: 20201211
  5. ADRIAMYCIN [Suspect]
     Active Substance: DOXORUBICIN HYDROCHLORIDE
     Indication: Acute lymphocytic leukaemia
     Dosage: 15.6 MG ON D1, D8, AND D15
     Route: 042
     Dates: start: 20201207, end: 20201222

REACTIONS (1)
  - Epstein-Barr virus infection reactivation [Recovered/Resolved]

NARRATIVE: CASE EVENT DATE: 20201231
